FAERS Safety Report 4314908-9 (Version None)
Quarter: 2004Q1

REPORT INFORMATION
  Report Type: 
  Country: None (occurrence: None)
  Receive Date: 20040310
  Receipt Date: 20040310
  Transmission Date: 20041129
  Serious: Yes (Hospitalization)
  Sender: FDA-Public Use
  Company Number: None

PATIENT
  Sex: Male
  Weight: 18.6 kg

DRUGS (1)
  1. SEVOFLURANE [Suspect]
     Indication: ANAESTHESIA
     Dates: start: 20030730

REACTIONS (3)
  - HYPERTENSION [None]
  - OXYGEN SATURATION DECREASED [None]
  - TACHYCARDIA [None]
